FAERS Safety Report 7403545-5 (Version None)
Quarter: 2011Q2

REPORT INFORMATION
  Report Type: 
  Country: None (occurrence: None)
  Receive Date: 20110408
  Receipt Date: 20110405
  Transmission Date: 20111010
  Serious: Yes (Death, Life-Threatening)
  Sender: FDA-Public Use
  Company Number: RS-MERCK-1104USA00495

PATIENT
  Age: 52 Year
  Sex: Female

DRUGS (5)
  1. ACYCLOVIR [Concomitant]
     Route: 042
  2. SULFAMETHOXAZOLE [Concomitant]
     Route: 042
  3. TRIMETHOPRIM [Concomitant]
     Route: 042
  4. VANCOMYCIN [Concomitant]
     Route: 042
  5. PRIMAXIN [Suspect]
     Route: 042

REACTIONS (3)
  - ENTEROCOCCAL INFECTION [None]
  - HERPES SEPSIS [None]
  - DRUG INEFFECTIVE [None]
